FAERS Safety Report 8830086 (Version 1)
Quarter: 2012Q4

REPORT INFORMATION
  Report Type: Report from Study
  Country: US (occurrence: US)
  Receive Date: 20121008
  Receipt Date: 20121008
  Transmission Date: 20130627
  Serious: No
  Sender: FDA-Public Use
  Company Number: US-VERTEX PHARMACEUTICAL INC.-AE-2012-006785

PATIENT

DRUGS (3)
  1. KALYDECO [Suspect]
     Indication: CYSTIC FIBROSIS
     Route: 048
     Dates: start: 20120509
  2. PULMOZYME [Concomitant]
  3. TOBI [Concomitant]

REACTIONS (1)
  - Muscle twitching [Recovered/Resolved]
